FAERS Safety Report 10690482 (Version 1)
Quarter: 2015Q1

REPORT INFORMATION
  Report Type: Spontaneous
  Country: US (occurrence: None)
  Receive Date: 20150102
  Receipt Date: 20150102
  Transmission Date: 20150720
  Serious: No
  Sender: FDA-Public Use
  Company Number: None

PATIENT

DRUGS (1)
  1. ACETAMINOPHEN\OXYCODONE HYDROCHLORIDE [Suspect]
     Active Substance: ACETAMINOPHEN\OXYCODONE HYDROCHLORIDE
     Indication: PAIN
     Dosage: 1 AS NEEDED TAKEN BY MOUTH
     Route: 048
     Dates: start: 20140826, end: 20141126

REACTIONS (4)
  - Product substitution issue [None]
  - Pain in extremity [None]
  - Blister [None]
  - Drug effect decreased [None]
